FAERS Safety Report 4564562-6 (Version None)
Quarter: 2005Q1

REPORT INFORMATION
  Report Type: 
  Country: None (occurrence: None)
  Receive Date: 20050126
  Receipt Date: 20050120
  Transmission Date: 20050727
  Serious: Yes (Hospitalization)
  Sender: FDA-Public Use
  Company Number: TCI2004A04758

PATIENT
  Age: 71 Year
  Sex: Male

DRUGS (14)
  1. LEUPROLIDE ACETATE [Suspect]
     Indication: PROSTATE CANCER STAGE II
     Dosage: SEE IMAGE
     Route: 058
     Dates: start: 20040513, end: 20041028
  2. LEUPROLIDE ACETATE [Suspect]
     Indication: PROSTATE CANCER STAGE II
     Dosage: SEE IMAGE
     Route: 058
     Dates: start: 20041125
  3. LANSOPRAZOLE [Suspect]
     Indication: GASTRIC ULCER
     Dosage: 60 MG (30 MG 2  IN 1 D); 30 MG (30 MG 1 IN 1 D)
     Route: 048
     Dates: start: 20041130, end: 20041207
  4. LANSOPRAZOLE [Suspect]
     Indication: GASTRIC ULCER
     Dosage: 60 MG (30 MG 2  IN 1 D); 30 MG (30 MG 1 IN 1 D)
     Route: 048
     Dates: start: 20041208, end: 20041227
  5. TROXIPIDE (TABLETS) [Concomitant]
  6. FAMOTIDINE [Concomitant]
  7. FAMOTIDINE [Concomitant]
  8. OXETACAINE [Concomitant]
  9. KOLANTYL GEL [Concomitant]
  10. CLARITHROMYCIN [Suspect]
     Indication: GASTRIC ULCER
     Dosage: 400 MG (200MG,2 IN 1 D)
     Route: 048
     Dates: start: 20041130, end: 20041207
  11. CLARITHROMYCIN [Suspect]
     Indication: HELICOBACTER INFECTION
     Dosage: 400 MG (200MG,2 IN 1 D)
     Route: 048
     Dates: start: 20041130, end: 20041207
  12. AMOXICILLIN [Suspect]
     Indication: GASTRIC ULCER
     Dosage: 1500 MG (500 MG,3 IN 1 D)
     Route: 048
     Dates: start: 20041130, end: 20041207
  13. AMOXICILLIN [Suspect]
     Indication: HELICOBACTER INFECTION
     Dosage: 1500 MG (500 MG,3 IN 1 D)
     Route: 048
     Dates: start: 20041130, end: 20041207
  14. GASTROM(ECABET MONOSODIUM)(GRANULATE [Suspect]
     Indication: GASTRIC ULCER
     Dosage: 3 G (1.5 G,2 IN 1 D)
     Route: 048
     Dates: start: 20041208, end: 20041228

REACTIONS (12)
  - BLOOD CHOLINESTERASE DECREASED [None]
  - GASTRIC ULCER [None]
  - GENERAL PHYSICAL HEALTH DETERIORATION [None]
  - GLUCOSE URINE PRESENT [None]
  - HELICOBACTER INFECTION [None]
  - HEPATIC ATROPHY [None]
  - HEPATIC FAILURE [None]
  - HEPATIC NEOPLASM [None]
  - HEPATITIS [None]
  - HYPERGLYCAEMIA [None]
  - MALAISE [None]
  - OEDEMA PERIPHERAL [None]
